FAERS Safety Report 10768625 (Version 3)
Quarter: 2015Q2

REPORT INFORMATION
  Report Type: Spontaneous
  Country: IT (occurrence: IT)
  Receive Date: 20150206
  Receipt Date: 20150424
  Transmission Date: 20150821
  Serious: No
  Sender: FDA-Public Use
  Company Number: IT-RANBAXY-2015R1-92635

PATIENT
  Age: 63 Year
  Sex: Female

DRUGS (2)
  1. METFORMINE [Suspect]
     Active Substance: METFORMIN HYDROCHLORIDE
     Indication: DIABETES MELLITUS MANAGEMENT
     Dosage: 850 MG, BID
     Route: 065
     Dates: start: 201303
  2. BEVACIZUMAB [Suspect]
     Active Substance: BEVACIZUMAB
     Indication: PRODUCT USED FOR UNKNOWN INDICATION
     Dosage: 3 CYCLES (7.5 MG/KG - 15 MG/KG)
     Route: 065

REACTIONS (2)
  - Therapeutic response unexpected [Unknown]
  - Abdominal discomfort [Unknown]
